FAERS Safety Report 6409883-7 (Version None)
Quarter: 2009Q4

REPORT INFORMATION
  Report Type: 
  Country: None (occurrence: None)
  Receive Date: 20091022
  Receipt Date: 20091019
  Transmission Date: 20100525
  Serious: Yes (Hospitalization)
  Sender: FDA-Public Use
  Company Number: DE-WYE-G04653309

PATIENT
  Sex: Female
  Weight: 65 kg

DRUGS (1)
  1. VENLAFAXINE HCL [Suspect]
     Dosage: 10 TABLETS/CAPSULES (OVERDOSE AMOUNT 375MG)
     Route: 048
     Dates: start: 20091018, end: 20091018

REACTIONS (5)
  - DIASTOLIC HYPERTENSION [None]
  - FATIGUE [None]
  - INTENTIONAL OVERDOSE [None]
  - SUICIDE ATTEMPT [None]
  - TACHYCARDIA [None]
